FAERS Safety Report 17718276 (Version 1)
Quarter: 2020Q2

REPORT INFORMATION
  Report Type: Spontaneous
  Country: US (occurrence: US)
  Receive Date: 20200428
  Receipt Date: 20200428
  Transmission Date: 20200714
  Serious: Yes (Hospitalization)
  Sender: FDA-Public Use
  Company Number: US-PFIZER INC-2020166392

PATIENT
  Age: 52 Year
  Sex: Female
  Weight: 99.79 kg

DRUGS (5)
  1. FLEXERIL [CEFIXIME] [Suspect]
     Active Substance: CEFIXIME
     Indication: RHEUMATOID ARTHRITIS
     Dosage: UNK
     Dates: end: 202003
  2. XELJANZ XR [Suspect]
     Active Substance: TOFACITINIB CITRATE
     Dosage: 11 MG, 1X/DAY
     Route: 048
     Dates: start: 202003, end: 202004
  3. RAYOS [Suspect]
     Active Substance: PREDNISONE
     Indication: RHEUMATOID ARTHRITIS
     Dosage: UNK
     Dates: end: 202003
  4. XELJANZ XR [Suspect]
     Active Substance: TOFACITINIB CITRATE
     Indication: RHEUMATOID ARTHRITIS
     Dosage: 11 MG, 1X/DAY
     Route: 048
     Dates: end: 201912
  5. VIMOVO [Suspect]
     Active Substance: ESOMEPRAZOLE MAGNESIUM\NAPROXEN
     Indication: RHEUMATOID ARTHRITIS
     Dosage: UNK
     Dates: end: 202003

REACTIONS (2)
  - Migraine [Recovered/Resolved with Sequelae]
  - Pain [Not Recovered/Not Resolved]

NARRATIVE: CASE EVENT DATE: 201912
